FAERS Safety Report 8489881-2 (Version None)
Quarter: 2012Q3

REPORT INFORMATION
  Report Type: 
  Country: None (occurrence: None)
  Receive Date: 20120705
  Receipt Date: 20120628
  Transmission Date: 20120928
  Serious: Yes (Hospitalization)
  Sender: FDA-Public Use
  Company Number: PHHY2012IR055668

PATIENT
  Age: 64 Year
  Sex: Female

DRUGS (3)
  1. WARFARIN SODIUM [Suspect]
     Indication: PROPHYLAXIS
     Dosage: 2.5 MG,
  2. WARFARIN SODIUM [Suspect]
     Dosage: 1.25 MG, UNK
  3. ASPIRIN [Concomitant]
     Dosage: 80 MG, DAILY

REACTIONS (5)
  - ACCELERATED HYPERTENSION [None]
  - INTERNATIONAL NORMALISED RATIO INCREASED [None]
  - FLANK PAIN [None]
  - ATRIAL FIBRILLATION [None]
  - HAEMATURIA [None]
